FAERS Safety Report 6263332-0 (Version None)
Quarter: 2009Q3

REPORT INFORMATION
  Report Type: 
  Country: None (occurrence: None)
  Receive Date: 20090710
  Receipt Date: 20090209
  Transmission Date: 20100115
  Serious: No
  Sender: FDA-Public Use
  Company Number: A0613324A

PATIENT
  Age: 3 Year
  Sex: Male

DRUGS (7)
  1. FLOVENT [Suspect]
     Indication: ASTHMA
     Dosage: 2PUFF TWICE PER DAY
     Route: 055
  2. ADVAIR HFA [Suspect]
     Indication: ASTHMA
     Route: 055
     Dates: start: 20020101, end: 20020101
  3. PREDNISONE TAB [Concomitant]
  4. ALBUTEROL [Concomitant]
  5. SINGULAIR [Concomitant]
  6. ZYRTEC [Concomitant]
  7. BENADRYL [Concomitant]

REACTIONS (5)
  - ECZEMA [None]
  - ENURESIS [None]
  - NIGHTMARE [None]
  - PAIN IN EXTREMITY [None]
  - SWOLLEN TONGUE [None]
